FAERS Safety Report 7799228-2 (Version None)
Quarter: 2011Q4

REPORT INFORMATION
  Report Type: 
  Country: None (occurrence: None)
  Receive Date: 20111006
  Receipt Date: 20110929
  Transmission Date: 20120403
  Serious: Yes (Hospitalization, Other)
  Sender: FDA-Public Use
  Company Number: AU-B.I. PHARMACEUTICALS,INC./RIDGEFIELD-2011-AU-01457AU

PATIENT
  Sex: Female
  Weight: 74 kg

DRUGS (4)
  1. MONOPRIL [Concomitant]
  2. MINAX [Concomitant]
  3. PRADAXA [Suspect]
     Indication: ATRIAL FIBRILLATION
     Dosage: TWICE DAILY
     Dates: start: 20110701, end: 20110903
  4. LIPITOR [Concomitant]

REACTIONS (4)
  - ANAEMIA [None]
  - GASTROINTESTINAL CARCINOMA [None]
  - HAEMORRHAGE [None]
  - INTRACARDIAC THROMBUS [None]
